FAERS Safety Report 7260991-0 (Version None)
Quarter: 2011Q1

REPORT INFORMATION
  Report Type: 
  Country: None (occurrence: None)
  Receive Date: 20110130
  Receipt Date: 20101112
  Transmission Date: 20110831
  Serious: Yes (Hospitalization)
  Sender: FDA-Public Use
  Company Number: US-ABBOTT-10P-163-0685269-00

PATIENT
  Sex: Male
  Weight: 138.47 kg

DRUGS (2)
  1. HUMIRA [Suspect]
     Indication: PSORIASIS
     Dates: start: 20100727
  2. HUMIRA [Suspect]

REACTIONS (2)
  - URTICARIA [None]
  - PSORIASIS [None]
